FAERS Safety Report 16120985 (Version 1)
Quarter: 2019Q1

REPORT INFORMATION
  Report Type: Spontaneous
  Country: FR (occurrence: FR)
  Receive Date: 20190327
  Receipt Date: 20190327
  Transmission Date: 20190418
  Serious: Yes (Life-Threatening, Hospitalization)
  Sender: FDA-Public Use
  Company Number: FR-TEVA-2019-FR-1029494

PATIENT
  Age: 72 Year
  Sex: Male
  Weight: 80 kg

DRUGS (7)
  1. XATRAL [Concomitant]
     Active Substance: ALFUZOSIN
  2. BETASERC [Concomitant]
     Active Substance: BETAHISTINE
  3. VELMETIA [Concomitant]
     Active Substance: METFORMIN\SITAGLIPTIN
  4. SOTALOL (CHLORHYDRATE DE) [Suspect]
     Active Substance: SOTALOL
     Indication: ATRIAL FIBRILLATION
     Dosage: 160 MILLIGRAM DAILY;
     Route: 048
     Dates: end: 20181122
  5. DIAMICRON [Concomitant]
     Active Substance: GLICLAZIDE
  6. STABLON [Concomitant]
     Active Substance: TIANEPTINE
  7. PREVISCAN [Concomitant]

REACTIONS (1)
  - Cardiogenic shock [Recovered/Resolved]

NARRATIVE: CASE EVENT DATE: 20181122
